APPROVED DRUG PRODUCT: DOXYCYCLINE HYCLATE
Active Ingredient: DOXYCYCLINE HYCLATE
Strength: EQ 150MG BASE
Dosage Form/Route: TABLET;ORAL
Application: A209243 | Product #002
Applicant: APOTEX INC
Approved: Apr 15, 2019 | RLD: No | RS: No | Type: DISCN